FAERS Safety Report 13304245 (Version 3)
Quarter: 2019Q1

REPORT INFORMATION
  Report Type: Report from Study
  Country: US (occurrence: US)
  Receive Date: 20170308
  Receipt Date: 20190128
  Transmission Date: 20190417
  Serious: Yes (Death, Other)
  Sender: FDA-Public Use
  Company Number: PHEH2017US006829

PATIENT
  Sex: Male
  Weight: 91 kg

DRUGS (2)
  1. GLEEVEC [Suspect]
     Active Substance: IMATINIB MESYLATE
     Indication: PRODUCT USED FOR UNKNOWN INDICATION
     Route: 065
  2. TASIGNA [Suspect]
     Active Substance: NILOTINIB
     Indication: PRODUCT USED FOR UNKNOWN INDICATION
     Dosage: UNK
     Route: 065
     Dates: start: 2011

REACTIONS (6)
  - Ventricular tachycardia [Fatal]
  - Malaise [Unknown]
  - Coronary artery disease [Fatal]
  - Atrial fibrillation [Fatal]
  - Pulseless electrical activity [Fatal]
  - Loss of consciousness [Unknown]
